FAERS Safety Report 12995931 (Version 1)
Quarter: 2016Q4

REPORT INFORMATION
  Report Type: Spontaneous
  Country: IE (occurrence: IE)
  Receive Date: 20161202
  Receipt Date: 20161202
  Transmission Date: 20170207
  Serious: Yes (Death)
  Sender: FDA-Public Use
  Company Number: IE-ACTELION-A-US2016-146414

PATIENT
  Age: 61 Year
  Sex: Female

DRUGS (1)
  1. VENTAVIS [Suspect]
     Active Substance: ILOPROST
     Indication: PULMONARY HYPERTENSION
     Dosage: 10 MCG, 6 TIMES DAILY
     Route: 055
     Dates: start: 20150713

REACTIONS (1)
  - Death [Fatal]

NARRATIVE: CASE EVENT DATE: 20161023
